FAERS Safety Report 9602065 (Version 1)
Quarter: 2013Q4

REPORT INFORMATION
  Report Type: Spontaneous
  Country: US (occurrence: None)
  Receive Date: 20131004
  Receipt Date: 20131004
  Transmission Date: 20140711
  Serious: Yes (Hospitalization)
  Sender: FDA-Public Use
  Company Number: None

PATIENT
  Age: 56 Year
  Sex: Female
  Weight: 65.7 kg

DRUGS (1)
  1. IBUPROFEN [Suspect]
     Dates: start: 20130921

REACTIONS (1)
  - Oesophageal ulcer [None]
